FAERS Safety Report 7058900-2 (Version None)
Quarter: 2010Q4

REPORT INFORMATION
  Report Type: 
  Country: None (occurrence: None)
  Receive Date: 20101022
  Receipt Date: 20101014
  Transmission Date: 20110411
  Serious: Yes (Hospitalization, Other)
  Sender: FDA-Public Use
  Company Number: DE-AMGEN INC.-QUU438873

PATIENT

DRUGS (8)
  1. ARANESP [Suspect]
     Indication: RENAL FAILURE CHRONIC
     Dosage: 100 PG, UNK
     Route: 058
     Dates: start: 20100407, end: 20100915
  2. MYCOPHENOLATE MOFETIL [Suspect]
     Dosage: 1 G, BID
     Route: 048
     Dates: start: 20100401, end: 20100916
  3. MINERAL TAB [Concomitant]
     Dosage: 2 ML, QWK
     Route: 042
     Dates: start: 20100805
  4. FUROSEMIDE [Concomitant]
     Dosage: 125 MG, QD
     Route: 048
     Dates: start: 20060101
  5. PIOGLITAZONE HCL [Concomitant]
     Dosage: 30 MG, UNK
     Route: 048
     Dates: start: 20100412
  6. CALCITRIOL [Concomitant]
     Dosage: .25 A?G, QD
     Route: 048
     Dates: start: 20100407
  7. CYCLOPHOSPHAMIDE [Concomitant]
     Dosage: 50 MG, BID
     Dates: start: 20040701, end: 20060301
  8. IRON [Concomitant]

REACTIONS (8)
  - APLASIA PURE RED CELL [None]
  - ASTHENIA [None]
  - DECREASED APPETITE [None]
  - DRUG EFFECT DECREASED [None]
  - ERYTHROBLAST COUNT DECREASED [None]
  - FATIGUE [None]
  - HAEMOGLOBIN DECREASED [None]
  - THROMBOCYTOPENIA [None]
